FAERS Safety Report 24313113 (Version 1)
Quarter: 2024Q3

REPORT INFORMATION
  Report Type: Spontaneous
  Country: PL (occurrence: PL)
  Receive Date: 20240912
  Receipt Date: 20240912
  Transmission Date: 20241016
  Serious: Yes (Other)
  Sender: NOVARTIS
  Company Number: PL-002147023-NVSC2024PL181581

PATIENT
  Sex: Male

DRUGS (3)
  1. ELTROMBOPAG [Suspect]
     Active Substance: ELTROMBOPAG
     Indication: Congenital thrombocytopenia
     Dosage: 1.5 MG/KG, QD (1 X 12.5 MG)
     Route: 065
  2. ELTROMBOPAG [Suspect]
     Active Substance: ELTROMBOPAG
     Dosage: 2.5 MG/KG, QD (1 X 25 MG)
     Route: 065
  3. ELTROMBOPAG [Suspect]
     Active Substance: ELTROMBOPAG
     Dosage: 5 MG/KG, QD (1 X 50 MG)
     Route: 065

REACTIONS (3)
  - Hepatotoxicity [Unknown]
  - Therapy non-responder [Unknown]
  - Off label use [Unknown]
